FAERS Safety Report 6503609-4 (Version None)
Quarter: 2009Q4

REPORT INFORMATION
  Report Type: 
  Country: None (occurrence: None)
  Receive Date: 20091217
  Receipt Date: 20091207
  Transmission Date: 20100525
  Serious: Yes (Hospitalization)
  Sender: FDA-Public Use
  Company Number: IE-SANOFI-AVENTIS-200920477GDDC

PATIENT
  Age: 74 Year
  Sex: Male

DRUGS (13)
  1. TAXOTERE [Suspect]
     Dosage: DOSE UNIT: 60 MG/M**2
     Route: 042
     Dates: start: 20090821, end: 20090821
  2. TAXOTERE [Suspect]
     Dosage: DOSE UNIT: 60 MG/M**2
     Route: 042
     Dates: start: 20090403, end: 20090403
  3. BLINDED THERAPY [Suspect]
     Route: 048
     Dates: start: 20090403, end: 20090813
  4. PREDNISONE [Suspect]
     Route: 048
     Dates: start: 20090403
  5. DEXAMETHASONE [Suspect]
     Indication: PREMEDICATION
  6. ASPIRIN [Concomitant]
     Dosage: DOSE AS USED: UNK
  7. OXYCONTIN [Concomitant]
     Dosage: DOSE AS USED: UNK
  8. ZOTON [Concomitant]
     Dosage: DOSE AS USED: UNK
  9. GALFER [Concomitant]
  10. CYCLIZINE [Concomitant]
  11. ATORVASTATIN CALCIUM [Concomitant]
  12. TEMAZEPAM [Concomitant]
  13. OXYNORM [Concomitant]

REACTIONS (4)
  - DEHYDRATION [None]
  - FATIGUE [None]
  - HYPONATRAEMIA [None]
  - OFF LABEL USE [None]
